FAERS Safety Report 24408816 (Version 1)
Quarter: 2024Q4

REPORT INFORMATION
  Report Type: Spontaneous
  Country: US (occurrence: US)
  Receive Date: 20241007
  Receipt Date: 20241007
  Transmission Date: 20250115
  Serious: No
  Sender: BIONPHARMA
  Company Number: US-Bion-013978

PATIENT
  Sex: Female

DRUGS (2)
  1. ATOVAQUONE [Suspect]
     Active Substance: ATOVAQUONE
     Indication: Stem cell transplant
     Dates: start: 20240828
  2. ATOVAQUONE [Suspect]
     Active Substance: ATOVAQUONE
     Indication: Leukaemia
     Dates: start: 20240828

REACTIONS (3)
  - Recalled product administered [Unknown]
  - Full blood count abnormal [Unknown]
  - Nausea [Unknown]
